FAERS Safety Report 23025801 (Version 3)
Quarter: 2023Q4

REPORT INFORMATION
  Report Type: Report from Study
  Country: PL (occurrence: PL)
  Receive Date: 20231004
  Receipt Date: 20231130
  Transmission Date: 20240109
  Serious: Yes (Hospitalization, Other)
  Sender: FDA-Public Use
  Company Number: PL-CELLTRION INC.-2023PL018894

PATIENT

DRUGS (6)
  1. TRUXIMA [Suspect]
     Active Substance: RITUXIMAB-ABBS
     Indication: Chronic lymphocytic leukaemia
     Dosage: 375 MG/M2, CYCLIC
     Route: 042
     Dates: start: 20221214
  2. TRUXIMA [Suspect]
     Active Substance: RITUXIMAB-ABBS
     Indication: B-cell small lymphocytic lymphoma
     Dosage: 500 MG/M2, CYCLIC
     Route: 042
     Dates: start: 20230111
  3. PIRTOBRUTINIB [Suspect]
     Active Substance: PIRTOBRUTINIB
     Indication: B-cell small lymphocytic lymphoma
     Dosage: 200 MG, TWICE A DAY
     Route: 048
     Dates: start: 20230705
  4. PIRTOBRUTINIB [Suspect]
     Active Substance: PIRTOBRUTINIB
     Indication: Chronic lymphocytic leukaemia
  5. BENDAMUSTINE [Suspect]
     Active Substance: BENDAMUSTINE
     Indication: Chronic lymphocytic leukaemia
     Dosage: 70 MG/M2, CYCLICAL
     Route: 042
     Dates: start: 20221214
  6. BENDAMUSTINE [Suspect]
     Active Substance: BENDAMUSTINE
     Indication: B-cell small lymphocytic lymphoma

REACTIONS (3)
  - Disease progression [Unknown]
  - Anaemia [Recovered/Resolved]
  - Clostridium difficile infection [Not Recovered/Not Resolved]

NARRATIVE: CASE EVENT DATE: 20230430
